FAERS Safety Report 24240682 (Version 2)
Quarter: 2024Q3

REPORT INFORMATION
  Report Type: Spontaneous
  Country: US (occurrence: None)
  Receive Date: 20240823
  Receipt Date: 20240909
  Transmission Date: 20241016
  Serious: Yes (Other)
  Sender: ENCUBE ETHICALS
  Company Number: US-Encube-001290

PATIENT
  Sex: Female

DRUGS (2)
  1. MESALAMINE [Suspect]
     Active Substance: MESALAMINE
     Indication: Abdominal pain upper
     Dosage: SUSPENSION, 4 G/60ML
     Route: 054
  2. MESALAMINE [Suspect]
     Active Substance: MESALAMINE
     Indication: Muscle spasms
     Dosage: SUSPENSION, 4 G/60ML
     Route: 054

REACTIONS (4)
  - Dizziness [Unknown]
  - Constipation [Unknown]
  - Gastrointestinal ulcer haemorrhage [Unknown]
  - Off label use [Unknown]

NARRATIVE: CASE EVENT DATE: 20240801
